FAERS Safety Report 4590107-0 (Version None)
Quarter: 2005Q1

REPORT INFORMATION
  Report Type: 
  Country: None (occurrence: None)
  Receive Date: 20050217
  Receipt Date: 20050209
  Transmission Date: 20050727
  Serious: Yes (Hospitalization)
  Sender: FDA-Public Use
  Company Number: 105964ISR

PATIENT

DRUGS (3)
  1. FLUOROURACIL [Suspect]
     Indication: RENAL CELL CARCINOMA STAGE UNSPECIFIED
     Dosage: INTRAVENOUS (NOS)
     Route: 042
  2. INTERFERON ALFA-2B [Suspect]
     Indication: RENAL CELL CARCINOMA STAGE UNSPECIFIED
     Dosage: INTRAVENOUS (NOS)
     Route: 042
  3. PROLEUKIN [Suspect]
     Indication: RENAL CELL CARCINOMA STAGE UNSPECIFIED
     Dosage: SUBCUTANEOUS
     Route: 058

REACTIONS (3)
  - CHILLS [None]
  - DIARRHOEA [None]
  - PYREXIA [None]
